FAERS Safety Report 6321657-4 (Version None)
Quarter: 2009Q3

REPORT INFORMATION
  Report Type: 
  Country: None (occurrence: None)
  Receive Date: 20090821
  Receipt Date: 20090821
  Transmission Date: 20100115
  Serious: Yes (Other)
  Sender: FDA-Public Use
  Company Number: None

PATIENT
  Age: 69 Year
  Sex: Female
  Weight: 62.1428 kg

DRUGS (12)
  1. ALENDRONATE SODIUM [Suspect]
     Indication: BONE DISORDER
     Dosage: 1 TABLET ONCE A WEEK ORAL
     Route: 048
     Dates: start: 20090703, end: 20090711
  2. ALENDRONATE SODIUM [Suspect]
     Indication: OSTEOPENIA
     Dosage: 1 TABLET ONCE A WEEK ORAL
     Route: 048
     Dates: start: 20090703, end: 20090711
  3. AUAPRO [Concomitant]
  4. NIACIN [Concomitant]
  5. LOVASTATIN [Concomitant]
  6. PAROXITINE CITRACAL [Concomitant]
  7. VITAMINS D,E [Concomitant]
  8. MULTI-VITAMIN [Concomitant]
  9. PAXIL [Concomitant]
  10. ASPIRIN [Concomitant]
  11. GLUCOSAMINE [Concomitant]
  12. FOLIC ACID [Concomitant]

REACTIONS (2)
  - NECK PAIN [None]
  - PAIN IN EXTREMITY [None]
